FAERS Safety Report 16597465 (Version 1)
Quarter: 2019Q3

REPORT INFORMATION
  Report Type: Report from Study
  Country: IT (occurrence: IT)
  Receive Date: 20190719
  Receipt Date: 20190719
  Transmission Date: 20191004
  Serious: Yes (Other)
  Sender: FDA-Public Use
  Company Number: IT-TEVA-2019-IT-1078555

PATIENT
  Age: 48 Year
  Sex: Female

DRUGS (5)
  1. PERINDOPRIL [Suspect]
     Active Substance: PERINDOPRIL
     Indication: HYPERTENSION
     Dosage: 2 MILLIGRAM DAILY;
     Route: 048
     Dates: start: 20180506, end: 20190506
  2. ACETYLSALICYLIC ACID [Concomitant]
     Active Substance: ASPIRIN
  3. EZETIMIBE. [Concomitant]
     Active Substance: EZETIMIBE
  4. PANTOPRAZOLE [Concomitant]
     Active Substance: PANTOPRAZOLE
  5. BISOPROLOL FUMARATE. [Suspect]
     Active Substance: BISOPROLOL FUMARATE
     Indication: HYPERTENSION
     Dosage: 2.5 MILLIGRAM DAILY;
     Route: 048
     Dates: start: 20180506, end: 20190506

REACTIONS (4)
  - Chest discomfort [Recovered/Resolved]
  - Abdominal pain upper [Recovered/Resolved]
  - Drug ineffective [Recovered/Resolved]
  - Hypertensive crisis [Recovered/Resolved]

NARRATIVE: CASE EVENT DATE: 20190504
